FAERS Safety Report 19172582 (Version 2)
Quarter: 2021Q2

REPORT INFORMATION
  Report Type: Report from Study
  Country: None (occurrence: RO)
  Receive Date: 20210423
  Receipt Date: 20210504
  Transmission Date: 20210717
  Serious: Yes (Death, Hospitalization, Other)
  Sender: FDA-Public Use
  Company Number: RO-ABBVIE-21K-135-3869008-00

PATIENT
  Age: 64 Year
  Sex: Male

DRUGS (2)
  1. DUODOPA [Suspect]
     Active Substance: CARBIDOPA\LEVODOPA
     Indication: PARKINSON^S DISEASE
     Dosage: DM 11.50, DC 4.10, ED 2.20, NRED 2, DMN 0.00, DCN 3.80, EDN 3.80, NREDN 0.
     Route: 050
     Dates: start: 20180717
  2. DUODOPA [Suspect]
     Active Substance: CARBIDOPA\LEVODOPA

REACTIONS (3)
  - Urinary retention [Unknown]
  - Abdominal pain [Unknown]
  - Urinary tract obstruction [Fatal]

NARRATIVE: CASE EVENT DATE: 20210419
